FAERS Safety Report 14098889 (Version 1)
Quarter: 2017Q4

REPORT INFORMATION
  Report Type: Spontaneous
  Country: US (occurrence: US)
  Receive Date: 20171017
  Receipt Date: 20171017
  Transmission Date: 20180321
  Serious: No
  Sender: FDA-Public Use
  Company Number: US-GLAXOSMITHKLINE-US2017GSK158780

PATIENT
  Sex: Female

DRUGS (1)
  1. BENLYSTA [Suspect]
     Active Substance: BELIMUMAB
     Indication: SYSTEMIC LUPUS ERYTHEMATOSUS
     Dosage: UNK, CYC
     Dates: end: 201704

REACTIONS (6)
  - Rash [Unknown]
  - Dry mouth [Unknown]
  - Arthralgia [Unknown]
  - Fatigue [Unknown]
  - Candida infection [Unknown]
  - Back pain [Unknown]

NARRATIVE: CASE EVENT DATE: 201706
